FAERS Safety Report 8918541 (Version 2)
Quarter: 2012Q4

REPORT INFORMATION
  Report Type: Report from Study
  Country: US (occurrence: US)
  Receive Date: 20121120
  Receipt Date: 20121218
  Transmission Date: 20130627
  Serious: Yes (Other)
  Sender: FDA-Public Use
  Company Number: US-ROCHE-1074056

PATIENT
  Age: 61 None
  Sex: Female
  Weight: 80.36 kg

DRUGS (10)
  1. CAPECITABINE [Suspect]
     Indication: BREAST CANCER METASTATIC
     Route: 048
     Dates: start: 201111, end: 201208
  2. CAPECITABINE [Suspect]
     Dosage: 1500 mg every AM and 1000 mg every PM
     Route: 048
     Dates: start: 20111219
  3. CAPECITABINE [Suspect]
     Route: 048
     Dates: start: 20120423
  4. CAPECITABINE [Suspect]
     Route: 048
     Dates: start: 201207
  5. CAPECITABINE [Suspect]
     Route: 048
     Dates: start: 201111, end: 201208
  6. CAPECITABINE [Suspect]
     Route: 048
     Dates: start: 201208
  7. CAPECITABINE [Suspect]
     Route: 048
     Dates: start: 20111219
  8. CAPECITABINE [Suspect]
     Route: 048
     Dates: start: 20111107
  9. ZOMETA [Concomitant]
     Route: 048
  10. PLAQUENIL [Concomitant]

REACTIONS (30)
  - Neoplasm [Not Recovered/Not Resolved]
  - Decreased appetite [Not Recovered/Not Resolved]
  - Abdominal discomfort [Not Recovered/Not Resolved]
  - Palmar-plantar erythrodysaesthesia syndrome [Not Recovered/Not Resolved]
  - Fatigue [Not Recovered/Not Resolved]
  - Diarrhoea [Recovered/Resolved]
  - Insomnia [Recovered/Resolved]
  - Contusion [Not Recovered/Not Resolved]
  - Erythema [Not Recovered/Not Resolved]
  - Oedema peripheral [Not Recovered/Not Resolved]
  - Skin fissures [Not Recovered/Not Resolved]
  - Viral infection [Not Recovered/Not Resolved]
  - Fatigue [Recovered/Resolved]
  - Product quality issue [Unknown]
  - Stomatitis [Not Recovered/Not Resolved]
  - Genital erythema [Not Recovered/Not Resolved]
  - Gait disturbance [Unknown]
  - Dry skin [Not Recovered/Not Resolved]
  - Pain in jaw [Unknown]
  - Dry skin [Not Recovered/Not Resolved]
  - Genital pain [Not Recovered/Not Resolved]
  - Ill-defined disorder [Not Recovered/Not Resolved]
  - Abdominal discomfort [Not Recovered/Not Resolved]
  - Pain in extremity [Not Recovered/Not Resolved]
  - Hypoaesthesia [Not Recovered/Not Resolved]
  - Burning sensation [Not Recovered/Not Resolved]
  - Pain in extremity [Not Recovered/Not Resolved]
  - Hypoaesthesia [Not Recovered/Not Resolved]
  - Burning sensation [Not Recovered/Not Resolved]
  - Neuralgia [Not Recovered/Not Resolved]
